FAERS Safety Report 10754491 (Version 1)
Quarter: 2015Q1

REPORT INFORMATION
  Report Type: Spontaneous
  Country: US (occurrence: None)
  Receive Date: 20150130
  Receipt Date: 20150130
  Transmission Date: 20150721
  Serious: Yes (Hospitalization)
  Sender: FDA-Public Use
  Company Number: None

PATIENT
  Age: 55 Year
  Sex: Male
  Weight: 66 kg

DRUGS (1)
  1. CHANTIX [Suspect]
     Active Substance: VARENICLINE TARTRATE
     Indication: SMOKING CESSATION THERAPY
     Route: 048
     Dates: start: 20150119, end: 20150121

REACTIONS (10)
  - Amnesia [None]
  - Abnormal behaviour [None]
  - Irritability [None]
  - Depression [None]
  - Agitation [None]
  - Seizure [None]
  - Mental status changes [None]
  - Confusional state [None]
  - Psychotic disorder [None]
  - Delirium [None]

NARRATIVE: CASE EVENT DATE: 20150128
